FAERS Safety Report 21129893 (Version 1)
Quarter: 2022Q3

REPORT INFORMATION
  Report Type: Spontaneous
  Country: FR (occurrence: FR)
  Receive Date: 20220726
  Receipt Date: 20220726
  Transmission Date: 20221027
  Serious: Yes (Other)
  Sender: FDA-Public Use
  Company Number: None

PATIENT
  Age: 87 Year
  Sex: Male
  Weight: 69 kg

DRUGS (5)
  1. SOTALOL HYDROCHLORIDE [Suspect]
     Active Substance: SOTALOL HYDROCHLORIDE
     Indication: Arrhythmia supraventricular
     Dosage: THE PATIENT DECLARES HAVING TAKEN ALL OF HIS SOTALOL PACK ,SOTALOL (CHLORHYDRATE DE) , FREQUENCY TIM
     Dates: start: 20211228, end: 20211228
  2. SOTALOL HYDROCHLORIDE [Suspect]
     Active Substance: SOTALOL HYDROCHLORIDE
     Dosage: 160 MILLIGRAM DAILY; BASIC TREATMENT: SOTALOL 80MG 2X/DAY , SOTALOL (CHLORHYDRATE DE)
  3. ROSUVASTATIN [Concomitant]
     Active Substance: ROSUVASTATIN
     Indication: Myocardial ischaemia
     Dosage: UNIT DOSE : 10 MG  , FREQUENCY TIME :  1 DAYS
  4. KARDEGIC [Concomitant]
     Active Substance: ASPIRIN DL-LYSINE
     Indication: Myocardial ischaemia
     Dosage: POWDER FOR ORAL SOLUTION IN SACHET-DOSE ,FORM STRENGTH : 75 MG UNIT DOSE : 100 MG  , FREQUENCY TIME
  5. FUROSEMIDE [Concomitant]
     Active Substance: FUROSEMIDE
     Indication: Cardiac failure
     Dosage: UNIT DOSE : 100 MG , FREQUENCY TIME :  1 DAYS

REACTIONS (3)
  - Bradycardia [Recovered/Resolved]
  - Poisoning deliberate [Recovered/Resolved]
  - Transaminases increased [Recovered/Resolved]

NARRATIVE: CASE EVENT DATE: 20211228
